FAERS Safety Report 7763238-1 (Version None)
Quarter: 2011Q3

REPORT INFORMATION
  Report Type: 
  Country: None (occurrence: None)
  Receive Date: 20110920
  Receipt Date: 20110917
  Transmission Date: 20111222
  Serious: Yes (Death)
  Sender: FDA-Public Use
  Company Number: PHHY2011NL81532

PATIENT
  Sex: Male

DRUGS (9)
  1. METFORMIN HCL [Concomitant]
  2. ACETYLSALICYLIC ACID SRT [Concomitant]
  3. ZOMETA [Suspect]
     Indication: PROSTATE CANCER METASTATIC
     Dosage: 4 MG/5ML ONCE PER 28 DAYS
     Dates: start: 20110525
  4. OXYCONTIN [Concomitant]
  5. BICALUTAMIDE [Concomitant]
  6. SPIRODACTONE [Concomitant]
  7. ZOMETA [Suspect]
     Dosage: 4 MG/5ML ONCE PER 28 DAYS
     Dates: start: 20110819
  8. ZOMETA [Suspect]
     Dosage: 4 MG/5ML ONCE PER 28 DAYS
     Dates: start: 20110913
  9. LIPITOR [Concomitant]

REACTIONS (3)
  - GOUT [None]
  - DEATH [None]
  - FLUID RETENTION [None]
